FAERS Safety Report 8737968 (Version 3)
Quarter: 2013Q1

REPORT INFORMATION
  Report Type: Spontaneous
  Country: US (occurrence: US)
  Receive Date: 20120823
  Receipt Date: 20130312
  Transmission Date: 20140127
  Serious: Yes (Hospitalization, Other)
  Sender: FDA-Public Use
  Company Number: US-009507513-1208USA004428

PATIENT
  Sex: Female
  Weight: 58.5 kg

DRUGS (4)
  1. FOSAMAX [Suspect]
     Indication: OSTEOPOROSIS
     Dosage: 70 MG, QW
     Route: 048
     Dates: start: 20020525
  2. FOSAMAX [Suspect]
     Indication: JOINT SWELLING
  3. FOSAMAX PLUS D [Suspect]
     Indication: OSTEOPOROSIS
     Dosage: UNK
     Route: 048
     Dates: start: 2005, end: 201009
  4. ALENDRONATE SODIUM [Suspect]
     Indication: OSTEOPOROSIS
     Dosage: 70 MG, QW
     Route: 048
     Dates: start: 2005, end: 20100917

REACTIONS (29)
  - Intramedullary rod insertion [Unknown]
  - Femur fracture [Unknown]
  - Open reduction of fracture [Unknown]
  - Stress fracture [Unknown]
  - Wrist surgery [Unknown]
  - Knee arthroplasty [Unknown]
  - Medical device removal [Unknown]
  - Bradycardia [Recovered/Resolved]
  - Cardiac arrest [Recovered/Resolved]
  - Respiratory arrest [Recovered/Resolved]
  - Hypokalaemia [Recovered/Resolved]
  - Thrombocytopenia [Unknown]
  - Anxiety [Unknown]
  - Haemophilia [Unknown]
  - Hypertension [Unknown]
  - Depression [Unknown]
  - Spinal osteoarthritis [Unknown]
  - Osteoarthritis [Unknown]
  - Hysterectomy [Unknown]
  - Osteopenia [Unknown]
  - Wound [Unknown]
  - Knee deformity [Unknown]
  - Off label use [Unknown]
  - Dizziness [Unknown]
  - Back pain [Unknown]
  - Back pain [Unknown]
  - Arthralgia [Unknown]
  - Diarrhoea [Unknown]
  - Gastrooesophageal reflux disease [Unknown]
